FAERS Safety Report 10681504 (Version 1)
Quarter: 2014Q4

REPORT INFORMATION
  Report Type: Spontaneous
  Country: FR (occurrence: None)
  Receive Date: 20141224
  Receipt Date: 20141224
  Transmission Date: 20150529
  Serious: Yes (Death)
  Sender: FDA-Public Use
  Company Number: 2014-FR-016584

PATIENT

DRUGS (7)
  1. METHOTREXATE [Concomitant]
     Active Substance: METHOTREXATE
  2. VINCRISTINE (VINCRISTINE SULFATE) [Concomitant]
     Active Substance: VINCRISTINE SULFATE
  3. IDARUBICIN (IDARUBICIN) (IDARUBICIN) [Concomitant]
     Active Substance: IDARUBICIN
  4. ASPARAGINASE (UNSPECIFIED) (ASPARAGINASE) INJECTION [Suspect]
     Active Substance: ASPARAGINASE
     Indication: ACUTE LYMPHOCYTIC LEUKAEMIA
     Dosage: 6000 IU/M2; 6 ADDITIONAL INFUSIONS CYCLE 1?
  5. CYCLOPHOSPHAMIDE. [Concomitant]
     Active Substance: CYCLOPHOSPHAMIDE
  6. CYTARABINE. [Concomitant]
     Active Substance: CYTARABINE
  7. DEXAMETHASONE. [Concomitant]
     Active Substance: DEXAMETHASONE

REACTIONS (1)
  - Encephalopathy [None]
